FAERS Safety Report 20097865 (Version 1)
Quarter: 2021Q4

REPORT INFORMATION
  Report Type: Spontaneous
  Country: LK (occurrence: LK)
  Receive Date: 20211122
  Receipt Date: 20211122
  Transmission Date: 20220304
  Serious: Yes (Life-Threatening, Hospitalization)
  Sender: FDA-Public Use
  Company Number: LK-GLASSHOUSE PHARMACEUTICALS LIMITED CA-2021GLH00005

PATIENT
  Age: 71 Year
  Sex: Male

DRUGS (3)
  1. CLINDAMYCIN [Suspect]
     Active Substance: CLINDAMYCIN
     Indication: Cellulitis
     Dosage: UNK
     Route: 065
  2. FLUCLOXACILLIN [Suspect]
     Active Substance: FLUCLOXACILLIN
     Indication: Cellulitis
     Dosage: UNK
     Route: 065
  3. CEPHALEXIN [Suspect]
     Active Substance: CEPHALEXIN
     Indication: Cellulitis
     Route: 065

REACTIONS (2)
  - Kounis syndrome [Recovered/Resolved]
  - Drug hypersensitivity [Recovered/Resolved]
